FAERS Safety Report 25336346 (Version 1)
Quarter: 2025Q2

REPORT INFORMATION
  Report Type: Spontaneous
  Country: CN (occurrence: CN)
  Receive Date: 20250520
  Receipt Date: 20250520
  Transmission Date: 20250717
  Serious: Yes (Hospitalization)
  Sender: NOVARTIS
  Company Number: CN-002147023-NVSC2025CN079337

PATIENT
  Age: 75 Year
  Sex: Male

DRUGS (2)
  1. SACUBITRIL\VALSARTAN [Suspect]
     Active Substance: SACUBITRIL\VALSARTAN
     Indication: Cerebrovascular disorder
     Dosage: 50 MG, QD
     Route: 048
     Dates: start: 20250512, end: 20250512
  2. NIFEDIPINE [Suspect]
     Active Substance: NIFEDIPINE
     Indication: Hypertension
     Dosage: 30 MG, QD (CONTROLLED RELEASED TABLETS)
     Route: 048
     Dates: start: 20250512, end: 20250512

REACTIONS (3)
  - Dizziness [Recovering/Resolving]
  - Nausea [Recovering/Resolving]
  - Off label use [Unknown]

NARRATIVE: CASE EVENT DATE: 20250512
